FAERS Safety Report 5846600-3 (Version None)
Quarter: 2008Q3

REPORT INFORMATION
  Report Type: 
  Country: None (occurrence: None)
  Receive Date: 20080815
  Receipt Date: 20080806
  Transmission Date: 20090109
  Serious: Yes (Hospitalization)
  Sender: FDA-Public Use
  Company Number: JP-JNJFOC-20080704788

PATIENT
  Sex: Male
  Weight: 49 kg

DRUGS (12)
  1. REMICADE [Suspect]
     Dosage: 10TH DOSE
     Route: 042
  2. REMICADE [Suspect]
     Dosage: 8 INFUSIONS, DATES UNSPECIFIED
     Route: 042
  3. REMICADE [Suspect]
     Indication: RHEUMATOID ARTHRITIS
     Route: 042
  4. RHEUMATREX [Suspect]
     Indication: RHEUMATOID ARTHRITIS
     Route: 048
  5. PREDNISOLONE [Suspect]
     Indication: RHEUMATOID ARTHRITIS
     Route: 048
  6. MAGMITT [Concomitant]
     Indication: CONSTIPATION
     Route: 048
  7. HYPEN [Concomitant]
     Indication: RHEUMATOID ARTHRITIS
     Route: 048
  8. ZANTAC [Concomitant]
     Indication: PROPHYLAXIS AGAINST GASTROINTESTINAL ULCER
     Route: 048
  9. FOLIAMIN [Concomitant]
     Indication: RHEUMATOID ARTHRITIS
     Route: 048
  10. DIOVAN [Concomitant]
     Indication: HYPERTENSION
     Route: 048
  11. GLIMICRON [Concomitant]
     Indication: DIABETES MELLITUS
     Route: 048
  12. BASEN [Concomitant]
     Indication: DIABETES MELLITUS
     Route: 048

REACTIONS (1)
  - PULMONARY TUBERCULOSIS [None]
